FAERS Safety Report 8436737-7 (Version None)
Quarter: 2012Q2

REPORT INFORMATION
  Report Type: 
  Country: None (occurrence: None)
  Receive Date: 20120614
  Receipt Date: 20120608
  Transmission Date: 20120825
  Serious: Yes (Hospitalization, Other)
  Sender: FDA-Public Use
  Company Number: FR-MERCK-1204FRA00033

PATIENT
  Age: 39 Year
  Sex: Female

DRUGS (8)
  1. VYTORIN [Suspect]
     Route: 048
  2. ETHINYL ESTRADIOL AND LEVONORGESTREL [Suspect]
     Route: 048
  3. BROMAZEPAM [Concomitant]
     Route: 065
  4. METFORMIN [Concomitant]
     Indication: TYPE 2 DIABETES MELLITUS
     Route: 065
  5. ALISKIREN FUMARATE [Suspect]
     Route: 048
  6. JANUVIA [Suspect]
     Indication: TYPE 2 DIABETES MELLITUS
     Route: 048
     Dates: start: 20081201, end: 20120318
  7. URAPIDIL [Concomitant]
     Route: 065
  8. NICARDIPINE HYDROCHLORIDE [Concomitant]
     Route: 065

REACTIONS (3)
  - PANCREATITIS ACUTE [None]
  - HYPERTRIGLYCERIDAEMIA [None]
  - HEPATIC NEOPLASM [None]
